APPROVED DRUG PRODUCT: CLONAZEPAM
Active Ingredient: CLONAZEPAM
Strength: 2MG
Dosage Form/Route: TABLET;ORAL
Application: A074979 | Product #003 | TE Code: AB
Applicant: SANDOZ INC
Approved: Aug 29, 1997 | RLD: No | RS: No | Type: RX